FAERS Safety Report 5132577-5 (Version None)
Quarter: 2006Q4

REPORT INFORMATION
  Report Type: 
  Country: None (occurrence: None)
  Receive Date: 20061017
  Receipt Date: 20061002
  Transmission Date: 20070319
  Serious: Yes (Life-Threatening, Hospitalization)
  Sender: FDA-Public Use
  Company Number: 2006BL005745

PATIENT
  Age: 84 Year
  Sex: Female

DRUGS (6)
  1. PREDNISOLONE SODIUM PHOSPHATE [Suspect]
     Indication: PEMPHIGOID
     Dosage: 15 MILLIGRAMS; ORAL
     Route: 048
  2. ASPIRIN [Suspect]
     Indication: TRANSIENT ISCHAEMIC ATTACK
     Dosage: 75 MILLIGRAMS; ONCE A DAY; ORAL
     Route: 048
     Dates: end: 20060803
  3. AQUEOUS CREAM [Concomitant]
  4. EPADERM [Concomitant]
  5. LORAZEPAM [Concomitant]
  6. VAGIFEM [Concomitant]

REACTIONS (2)
  - GASTROINTESTINAL HAEMORRHAGE [None]
  - HYPOTENSION [None]
